FAERS Safety Report 19224215 (Version 9)
Quarter: 2021Q3

REPORT INFORMATION
  Report Type: Report from Study
  Country: KR (occurrence: KR)
  Receive Date: 20210506
  Receipt Date: 20210916
  Transmission Date: 20211014
  Serious: Yes (Hospitalization)
  Sender: FDA-Public Use
  Company Number: KR-GLAXOSMITHKLINE-KR2021085580

PATIENT
  Age: 67 Year
  Sex: Male
  Weight: 64 kg

DRUGS (25)
  1. ACTINAMIDE INJECTION [Concomitant]
     Indication: PREMEDICATION
     Dosage: 1 MG (FREQUENCY = OTHER: Q3CYCLE)
     Route: 030
     Dates: start: 20210225
  2. FOLCID [Concomitant]
     Indication: PREMEDICATION
     Dosage: 1 MG (FREQUENCY = ONCE DAILY)
     Route: 048
     Dates: start: 20210225
  3. PEMETREXED. [Suspect]
     Active Substance: PEMETREXED
     Dosage: DOSE AT DAY 1
     Route: 042
     Dates: start: 20210318, end: 20210318
  4. CARBOPLATIN (NON?GSK COMPARATOR) [Suspect]
     Active Substance: CARBOPLATIN
     Dosage: DOSE AT DAY 1
     Route: 042
     Dates: start: 20210318, end: 20210318
  5. ALOXI INJECTION [Concomitant]
     Indication: PREMEDICATION
     Dosage: 0.25 MG (FREQUENCY = OTHER: Q3W)
     Route: 042
     Dates: start: 20210225
  6. UNASYN (SULTAMICILLIN TOSYLATE) [Concomitant]
     Active Substance: SULTAMICILLIN TOSYLATE
     Indication: INFECTION PROPHYLAXIS
     Dosage: 375 MG (FREQUENCY = THREE TIMES DAILY)
     Route: 048
     Dates: start: 20210426, end: 20210502
  7. ORAMEDY OINTMENT [Concomitant]
     Indication: PROPHYLAXIS
     Dosage: 10 G (FREQUENCY = AS NEEDED)
     Route: 061
     Dates: start: 20210517
  8. JARDIANCE DUO [Concomitant]
     Active Substance: EMPAGLIFLOZIN\METFORMIN HYDROCHLORIDE
     Indication: DIABETES MELLITUS
     Dosage: 1 TABLET (FREQUENCY = ONCE DAILY)
     Route: 048
     Dates: start: 2018
  9. DUPHALAC EASY SYRUP [Concomitant]
     Indication: CONSTIPATION PROPHYLAXIS
     Dosage: 15 ML (FREQUENCY = AS NEEDED)
     Route: 048
     Dates: start: 20210225
  10. LOPERAMIDE [Concomitant]
     Active Substance: LOPERAMIDE
     Indication: PROPHYLAXIS AGAINST DIARRHOEA
     Dosage: 2 MG (FREQUENCY = AS NEEDED)
     Route: 048
     Dates: start: 20210225
  11. DOSTARLIMAB [Suspect]
     Active Substance: DOSTARLIMAB
     Indication: NON-SMALL CELL LUNG CANCER
     Dosage: DOSE AT CYCLE 1 ? DAY 1
     Dates: start: 20210225, end: 20210225
  12. XOTERNA BREEZHALER [Concomitant]
     Active Substance: GLYCOPYRRONIUM\INDACATEROL
     Indication: ASTHMA
     Dosage: 1 CAPSULE (FREQUENCY = TWICE DAILY)
     Route: 050
     Dates: start: 2020
  13. STOGAR [Concomitant]
     Active Substance: LAFUTIDINE
     Indication: GASTRITIS PROPHYLAXIS
     Dosage: 10 MG (FREQUENCY = TWICE DAILY)
     Route: 048
     Dates: start: 20210408
  14. PEMETREXED. [Suspect]
     Active Substance: PEMETREXED
     Indication: NON-SMALL CELL LUNG CANCER
     Dosage: DOSE AT CYCLE 1 ? DAY 1
     Route: 042
     Dates: start: 20210225, end: 20210225
  15. FLIVAS [Concomitant]
     Active Substance: NAFTOPIDIL
     Indication: DYSURIA
     Dosage: 25 MG (FREQUENCY = ONCE DAILY)
     Route: 048
     Dates: start: 20210423
  16. XANAX [Concomitant]
     Active Substance: ALPRAZOLAM
     Indication: PSYCHIATRIC DISORDER PROPHYLAXIS
     Dosage: 0.25 MG (FREQUENCY = THREE TIMES DAILY)
     Route: 048
     Dates: start: 20210708
  17. MACPERAN [Concomitant]
     Active Substance: METOCLOPRAMIDE HYDROCHLORIDE
     Indication: PROPHYLAXIS OF NAUSEA AND VOMITING
     Dosage: 10 MG (FREQUENCY = AS NEEDED)
     Route: 048
     Dates: start: 20210225
  18. DOSTARLIMAB [Suspect]
     Active Substance: DOSTARLIMAB
     Dosage: DOSE AT DAY 1
     Dates: start: 20210318, end: 20210318
  19. DEXAMETHASONE. [Concomitant]
     Active Substance: DEXAMETHASONE
     Indication: PREMEDICATION
     Dosage: 4 MG, BID
     Route: 048
     Dates: start: 20210225
  20. DEXAMETHASONE. [Concomitant]
     Active Substance: DEXAMETHASONE
     Dosage: 4 MG (FREQUENCY = TWICE DAILY)
     Route: 048
     Dates: start: 20210225
  21. ALFOATILIN (CHOLINE ALFOSCERATE) [Concomitant]
     Indication: PROPHYLAXIS
     Dosage: 400 MG (FREQUENCY = TWICE DAILY)
     Route: 048
     Dates: start: 20210517
  22. CARBOPLATIN (NON?GSK COMPARATOR) [Suspect]
     Active Substance: CARBOPLATIN
     Indication: NON-SMALL CELL LUNG CANCER
     Dosage: DOSE AT CYCLE 1 ? DAY 1
     Route: 042
     Dates: start: 20210225, end: 20210225
  23. MAGNESIUM OXIDE. [Concomitant]
     Active Substance: MAGNESIUM OXIDE
     Indication: CONSTIPATION PROPHYLAXIS
     Dosage: 500 MG (FREQUENCY = AS NEEDED)
     Route: 048
     Dates: start: 20210225
  24. TANTUM [Concomitant]
     Active Substance: BENZYDAMINE HYDROCHLORIDE
     Indication: PROPHYLAXIS
     Dosage: 100 ML (FREQUENCY = AS NEEDED)
     Route: 050
     Dates: start: 20210225
  25. PERIDEX OINTMENT [Concomitant]
     Indication: PROPHYLAXIS
     Dosage: 6 G (FREQUENCY = AS NEEDED)
     Route: 061
     Dates: start: 20210503, end: 20210516

REACTIONS (1)
  - Pneumonia [Recovered/Resolved]

NARRATIVE: CASE EVENT DATE: 20210408
